FAERS Safety Report 9291002 (Version 1)
Quarter: 2013Q2

REPORT INFORMATION
  Report Type: Spontaneous
  Country: FR (occurrence: None)
  Receive Date: 20130513
  Receipt Date: 20130513
  Transmission Date: 20140414
  Serious: Yes (Other)
  Sender: FDA-Public Use
  Company Number: FK201301316

PATIENT
  Age: 73 Year
  Sex: Male
  Weight: 80.5 kg

DRUGS (4)
  1. CLINDAMYCIN [Suspect]
     Indication: ANTIBIOTIC THERAPY
     Dates: start: 20130405, end: 20130415
  2. KEPPRA [Suspect]
     Indication: CONVULSION
     Dates: start: 20130405, end: 20130412
  3. RIFAMPICIN (RIFAMPICIN [Concomitant]
  4. AMOXICILLIN (AMOXICILLIN) [Suspect]
     Indication: ANTIBIOTIC THERAPY
     Dates: start: 20130329, end: 20130417

REACTIONS (5)
  - Renal failure acute [None]
  - Eosinophilia [None]
  - Rash erythematous [None]
  - Rash maculo-papular [None]
  - Tubulointerstitial nephritis [None]
